FAERS Safety Report 24801287 (Version 1)
Quarter: 2025Q1

REPORT INFORMATION
  Report Type: Other
  Country: FR (occurrence: FR)
  Receive Date: 20250102
  Receipt Date: 20250102
  Transmission Date: 20250409
  Serious: Yes (Other)
  Sender: Atnahs Healthcare
  Company Number: None

PATIENT
  Age: 27 Year
  Sex: Male

DRUGS (2)
  1. DIAZEPAM [Suspect]
     Active Substance: DIAZEPAM
     Indication: Product used for unknown indication
     Dosage: 10 MG X 5-10 TABLETS/DAY
     Route: 048
     Dates: start: 202311, end: 202411
  2. TRAMADOL [Suspect]
     Active Substance: TRAMADOL
     Indication: Product used for unknown indication
     Dosage: 50 MG LI X 25 TABS/D
     Route: 048
     Dates: start: 2018, end: 202411

REACTIONS (4)
  - Drug use disorder [Recovering/Resolving]
  - Loss of libido [Recovered/Resolved]
  - Constipation [Recovered/Resolved]
  - Dysuria [Recovering/Resolving]

NARRATIVE: CASE EVENT DATE: 20180101
